FAERS Safety Report 20623931 (Version 1)
Quarter: 2022Q1

REPORT INFORMATION
  Report Type: Spontaneous
  Country: US (occurrence: US)
  Receive Date: 20220322
  Receipt Date: 20220322
  Transmission Date: 20220423
  Serious: No
  Sender: FDA-Public Use
  Company Number: US-GILEAD-2022-0574298

PATIENT
  Sex: Female

DRUGS (13)
  1. SOFOSBUVIR\VELPATASVIR [Suspect]
     Active Substance: SOFOSBUVIR\VELPATASVIR
     Indication: Chronic hepatitis C
     Dosage: 1 DOSAGE FORM, QD
     Route: 048
  2. LEVOTHYROXINE SODIUM [Concomitant]
     Active Substance: LEVOTHYROXINE SODIUM
  3. CELECOXIB [Concomitant]
     Active Substance: CELECOXIB
  4. TYLENOL [Concomitant]
     Active Substance: ACETAMINOPHEN
  5. IBUPROFEN [Concomitant]
     Active Substance: IBUPROFEN
  6. VITAMIN B12 [Concomitant]
     Active Substance: CYANOCOBALAMIN
  7. IRON [Concomitant]
     Active Substance: IRON
  8. VITAMIN D NOS [Concomitant]
     Active Substance: VITAMIN D NOS
  9. MAGNESIUM [Concomitant]
     Active Substance: MAGNESIUM
  10. VITAMINS NOS [Concomitant]
     Active Substance: VITAMINS
  11. BIOTIN [Concomitant]
     Active Substance: BIOTIN
  12. ADDERALL [Concomitant]
     Active Substance: AMPHETAMINE ASPARTATE\AMPHETAMINE SULFATE\DEXTROAMPHETAMINE SACCHARATE\DEXTROAMPHETAMINE SULFATE
  13. POTASSIUM [Concomitant]
     Active Substance: POTASSIUM

REACTIONS (1)
  - Intentional dose omission [Unknown]
